FAERS Safety Report 17087485 (Version 1)
Quarter: 2019Q4

REPORT INFORMATION
  Report Type: Spontaneous
  Country: US (occurrence: US)
  Receive Date: 20191128
  Receipt Date: 20191128
  Transmission Date: 20200122
  Serious: Yes (Hospitalization)
  Sender: FDA-Public Use
  Company Number: US-APOTEX-2019AP025330

PATIENT
  Age: 34 Year
  Sex: Male

DRUGS (4)
  1. RISPERDAL CONSTA [Suspect]
     Active Substance: RISPERIDONE
     Indication: SCHIZOAFFECTIVE DISORDER BIPOLAR TYPE
     Dosage: UNK
     Route: 030
  2. RISPERIDONE. [Suspect]
     Active Substance: RISPERIDONE
     Indication: SCHIZOAFFECTIVE DISORDER BIPOLAR TYPE
     Dosage: UNK
     Route: 048
  3. TRAZODONE [Suspect]
     Active Substance: TRAZODONE HYDROCHLORIDE
     Indication: SCHIZOAFFECTIVE DISORDER BIPOLAR TYPE
     Dosage: UNK
     Route: 065
     Dates: start: 200809
  4. CARBAMAZEPINE. [Suspect]
     Active Substance: CARBAMAZEPINE
     Indication: SCHIZOAFFECTIVE DISORDER BIPOLAR TYPE
     Dosage: UNK
     Route: 065

REACTIONS (1)
  - Priapism [Recovered/Resolved with Sequelae]

NARRATIVE: CASE EVENT DATE: 20080911
